FAERS Safety Report 24437149 (Version 1)
Quarter: 2024Q4

REPORT INFORMATION
  Report Type: Spontaneous
  Country: US (occurrence: None)
  Receive Date: 20241011
  Receipt Date: 20241011
  Transmission Date: 20250115
  Serious: Yes (Other)
  Sender: Public
  Company Number: None

PATIENT
  Age: 45 Year
  Sex: Female
  Weight: 69.75 kg

DRUGS (8)
  1. EMGALITY [Suspect]
     Active Substance: GALCANEZUMAB-GNLM
     Indication: Migraine
     Dates: start: 20240913, end: 20240913
  2. MAGNESIUM [Suspect]
     Active Substance: MAGNESIUM
  3. ZYRTEC [Concomitant]
     Active Substance: CETIRIZINE HYDROCHLORIDE
  4. VITAMIN D [Concomitant]
     Active Substance: VITAMIN D NOS
  5. QUERCETIN [Concomitant]
  6. RIBOFLAVIN [Concomitant]
  7. GINGER [Concomitant]
     Active Substance: GINGER
  8. COENZYME Q10 [Concomitant]
     Active Substance: DIETARY SUPPLEMENT\UBIDECARENONE

REACTIONS (9)
  - Urticaria [None]
  - Oral pruritus [None]
  - Throat irritation [None]
  - Oropharyngeal pain [None]
  - Dysphagia [None]
  - Injection site pruritus [None]
  - Injection site swelling [None]
  - Eye pruritus [None]
  - Speech disorder [None]

NARRATIVE: CASE EVENT DATE: 20240914
